FAERS Safety Report 18568797 (Version 1)
Quarter: 2020Q4

REPORT INFORMATION
  Report Type: Spontaneous
  Country: UA (occurrence: UA)
  Receive Date: 20201202
  Receipt Date: 20201202
  Transmission Date: 20210114
  Serious: Yes (Other)
  Sender: FDA-Public Use
  Company Number: UA-AUROBINDO-AUR-APL-2020-059492

PATIENT
  Age: 40 Year
  Sex: Female

DRUGS (1)
  1. DOLUTEGRAVIR [Suspect]
     Active Substance: DOLUTEGRAVIR
     Indication: HIV-2 INFECTION
     Dosage: 50 MILLIGRAM
     Route: 048
     Dates: start: 2018

REACTIONS (6)
  - Glomerular filtration rate decreased [Unknown]
  - Pancreatitis [Unknown]
  - Fatigue [Unknown]
  - Decreased appetite [Unknown]
  - Aggression [Unknown]
  - Weight decreased [Unknown]

NARRATIVE: CASE EVENT DATE: 2018
